FAERS Safety Report 6158608-1 (Version None)
Quarter: 2009Q2

REPORT INFORMATION
  Report Type: 
  Country: None (occurrence: None)
  Receive Date: 20090417
  Receipt Date: 20090413
  Transmission Date: 20091009
  Serious: Yes (Hospitalization)
  Sender: FDA-Public Use
  Company Number: US-ASTRAZENECA-2003UW02097

PATIENT
  Age: 91 Year
  Sex: Female
  Weight: 70.3 kg

DRUGS (11)
  1. TOPROL-XL [Suspect]
     Indication: BLOOD PRESSURE
     Route: 048
  2. TOPROL-XL [Suspect]
     Route: 048
  3. COZAAR [Concomitant]
  4. ELAVIL [Concomitant]
     Route: 048
  5. PROTONIX [Concomitant]
  6. COLACE [Concomitant]
  7. LASIX [Concomitant]
  8. NEXIUM [Concomitant]
  9. VITAMIN D [Concomitant]
  10. PLAVIX [Concomitant]
  11. ASPIRIN [Concomitant]

REACTIONS (4)
  - ALOPECIA [None]
  - CARDIAC DISORDER [None]
  - HYPOTENSION [None]
  - NAIL DISORDER [None]
